FAERS Safety Report 11180632 (Version 1)
Quarter: 2015Q2

REPORT INFORMATION
  Report Type: Spontaneous
  Country: SA (occurrence: SA)
  Receive Date: 20150611
  Receipt Date: 20150611
  Transmission Date: 20150821
  Serious: Yes (Hospitalization)
  Sender: FDA-Public Use
  Company Number: SA-SA-2015SA080286

PATIENT
  Age: 32 Year
  Sex: Female
  Weight: 71.5 kg

DRUGS (1)
  1. THYMOGLOBULINE [Suspect]
     Active Substance: LAPINE T-LYMPHOCYTE IMMUNE GLOBULIN
     Route: 065

REACTIONS (6)
  - Urinary tract infection pseudomonal [Recovered/Resolved]
  - Pyrexia [Recovered/Resolved]
  - Diabetic ketoacidosis [Recovered/Resolved]
  - Urosepsis [Recovered/Resolved]
  - Abdominal pain [Recovered/Resolved]
  - Escherichia urinary tract infection [Recovered/Resolved]

NARRATIVE: CASE EVENT DATE: 20121011
